FAERS Safety Report 6210592-8 (Version None)
Quarter: 2009Q2

REPORT INFORMATION
  Report Type: 
  Country: None (occurrence: None)
  Receive Date: 20090601
  Receipt Date: 20090525
  Transmission Date: 20091009
  Serious: Yes (Other)
  Sender: FDA-Public Use
  Company Number: B0573075A

PATIENT
  Sex: Female
  Weight: 65 kg

DRUGS (7)
  1. LAMBIPOL [Suspect]
     Indication: DEPRESSION
     Dosage: 50MG PER DAY
     Route: 065
     Dates: start: 20090404, end: 20090405
  2. CITALOPRAM HYDROBROMIDE [Concomitant]
     Indication: DEPRESSION
     Dosage: 20MG PER DAY
     Route: 048
     Dates: start: 20090318
  3. LITHIUM CARBONATE [Concomitant]
  4. SERLAIN [Concomitant]
     Indication: DEPRESSION
     Dosage: 50MG PER DAY
     Route: 048
     Dates: start: 20090318
  5. PROPRANOLOL CHLORHYDRATE [Concomitant]
     Dosage: 80MG PER DAY
     Route: 048
     Dates: start: 20090318
  6. LORAZEPAM [Concomitant]
     Indication: ANXIETY
     Dosage: 1MG PER DAY
     Route: 048
     Dates: start: 20090318
  7. ZOLPIDEM TARTRATE [Concomitant]
     Indication: INSOMNIA
     Dosage: 10MG PER DAY
     Route: 048
     Dates: start: 20090318

REACTIONS (4)
  - PRURITUS [None]
  - RASH [None]
  - RASH GENERALISED [None]
  - STEVENS-JOHNSON SYNDROME [None]
